FAERS Safety Report 7057207-7 (Version None)
Quarter: 2010Q4

REPORT INFORMATION
  Report Type: 
  Country: None (occurrence: None)
  Receive Date: 20101021
  Receipt Date: 20101021
  Transmission Date: 20110411
  Serious: Yes (Hospitalization)
  Sender: FDA-Public Use
  Company Number: None

PATIENT
  Sex: Female
  Weight: 114.3 kg

DRUGS (2)
  1. CISPLATIN [Suspect]
     Dosage: 55 MG
     Dates: end: 20100928
  2. TAXOL [Suspect]
     Dosage: 240 MG
     Dates: end: 20100927

REACTIONS (4)
  - ERYTHEMA [None]
  - MUSCULOSKELETAL CHEST PAIN [None]
  - NEUTROPHIL COUNT DECREASED [None]
  - SWELLING [None]
